FAERS Safety Report 9864382 (Version 1)
Quarter: 2014Q1

REPORT INFORMATION
  Report Type: Report from Study
  Country: CN (occurrence: CN)
  Receive Date: 20140203
  Receipt Date: 20140203
  Transmission Date: 20141002
  Serious: Yes (Other)
  Sender: FDA-Public Use
  Company Number: CN-BAXTER-2014BAX004450

PATIENT
  Sex: 0

DRUGS (3)
  1. ENDOXAN 1G [Suspect]
     Indication: GLOMERULONEPHRITIS MEMBRANOUS
     Route: 065
  2. TACROLIMUS [Suspect]
     Indication: GLOMERULONEPHRITIS MEMBRANOUS
     Route: 065
  3. PREDNISONE [Suspect]
     Indication: GLOMERULONEPHRITIS MEMBRANOUS
     Route: 065

REACTIONS (1)
  - Disease recurrence [Unknown]
